FAERS Safety Report 24234661 (Version 1)
Quarter: 2024Q3

REPORT INFORMATION
  Report Type: Spontaneous
  Country: US (occurrence: None)
  Receive Date: 20240821
  Receipt Date: 20240821
  Transmission Date: 20241016
  Serious: Yes (Hospitalization, Other)
  Sender: ASTRAZENECA
  Company Number: 2024A187547

PATIENT
  Age: 69 Year
  Sex: Male

DRUGS (8)
  1. SEROQUEL [Interacting]
     Active Substance: QUETIAPINE FUMARATE
     Route: 048
  2. NUPLAZID [Interacting]
     Active Substance: PIMAVANSERIN TARTRATE
     Indication: Parkinson^s disease
     Route: 048
     Dates: start: 20220122
  3. CEPHALEXIN [Concomitant]
     Active Substance: CEPHALEXIN
  4. IBUPROFEN [Concomitant]
     Active Substance: IBUPROFEN
  5. QUETIAPINE [Concomitant]
     Active Substance: QUETIAPINE
  6. CARBIDOPA\LEVODOPA [Concomitant]
     Active Substance: CARBIDOPA\LEVODOPA
  7. LISINOPRIL [Concomitant]
     Active Substance: LISINOPRIL
  8. PRAMIPEXOLE [Concomitant]
     Active Substance: PRAMIPEXOLE\PRAMIPEXOLE DIHYDROCHLORIDE

REACTIONS (6)
  - Urinary tract infection [Not Recovered/Not Resolved]
  - Electrocardiogram QT prolonged [Not Recovered/Not Resolved]
  - Disease progression [Not Recovered/Not Resolved]
  - Drug interaction [Not Recovered/Not Resolved]
  - Hallucination [Not Recovered/Not Resolved]
  - Quality of life decreased [Unknown]
